FAERS Safety Report 7984096-6 (Version None)
Quarter: 2011Q4

REPORT INFORMATION
  Report Type: 
  Country: None (occurrence: None)
  Receive Date: 20111216
  Receipt Date: 20111213
  Transmission Date: 20120403
  Serious: Yes (Other)
  Sender: FDA-Public Use
  Company Number: US-PFIZER INC-2011302573

PATIENT
  Age: 21 Year
  Sex: Female
  Weight: 58.3 kg

DRUGS (3)
  1. SULFASALAZINE [Suspect]
     Indication: JUVENILE ARTHRITIS
     Dosage: 100 MG, 2X/DAY
     Dates: start: 20030101
  2. ETANERCEPT [Suspect]
     Indication: JUVENILE ARTHRITIS
     Dosage: 50 MG, WEEKLY
     Route: 058
     Dates: start: 20070701
  3. LEVONORGESTREL + ETHINYL ESTRADIOL [Concomitant]
     Dosage: 0.15 MG, 1X/DAY
     Dates: start: 20090101

REACTIONS (1)
  - CERVICAL DYSPLASIA [None]
